FAERS Safety Report 8452167-6 (Version None)
Quarter: 2012Q2

REPORT INFORMATION
  Report Type: 
  Country: None (occurrence: None)
  Receive Date: 20120620
  Receipt Date: 20120614
  Transmission Date: 20120825
  Serious: Yes (Other)
  Sender: FDA-Public Use
  Company Number: JP-GLAXOSMITHKLINE-B0802962A

PATIENT
  Age: 4 Year
  Sex: Male

DRUGS (4)
  1. PRANLUKAST HYDRATE [Concomitant]
     Route: 048
  2. FLUTICASONE PROPIONATE [Suspect]
     Indication: PRODUCT USED FOR UNKNOWN INDICATION
     Route: 055
  3. TULOBUTEROL [Concomitant]
     Route: 062
  4. KETOTIFEN FUMARATE [Concomitant]
     Route: 048

REACTIONS (2)
  - TOOTH DISCOLOURATION [None]
  - PNEUMONIA [None]
